FAERS Safety Report 14477350 (Version 2)
Quarter: 2018Q3

REPORT INFORMATION
  Report Type: Report from Study
  Country: US (occurrence: US)
  Receive Date: 20180201
  Receipt Date: 20180723
  Transmission Date: 20181010
  Serious: No
  Sender: FDA-Public Use
  Company Number: US-EXELIXIS-CABO-17011135

PATIENT
  Age: 63 Year
  Sex: Male

DRUGS (22)
  1. AMLODIPINE [Concomitant]
     Active Substance: AMLODIPINE BESYLATE
  2. LORAZEPAM. [Concomitant]
     Active Substance: LORAZEPAM
  3. CLONIDINE. [Concomitant]
     Active Substance: CLONIDINE
  4. INLYTA [Concomitant]
     Active Substance: AXITINIB
  5. PROCARDIA [Concomitant]
     Active Substance: NIFEDIPINE
  6. CABOMETYX [Suspect]
     Active Substance: CABOZANTINIB S-MALATE
     Dosage: 40 MG, QD
     Route: 048
     Dates: start: 20171216
  7. LEVOTHYROXINE. [Concomitant]
     Active Substance: LEVOTHYROXINE
  8. HYDROCHLOROTHIAZIDE. [Concomitant]
     Active Substance: HYDROCHLOROTHIAZIDE
  9. ALPRAZOLAM. [Concomitant]
     Active Substance: ALPRAZOLAM
  10. ASA [Concomitant]
     Active Substance: ASPIRIN
  11. VITAMIN D [Concomitant]
     Active Substance: CHOLECALCIFEROL
  12. HYDRODIURIL [Concomitant]
     Active Substance: HYDROCHLOROTHIAZIDE
  13. KLOR?CON [Concomitant]
     Active Substance: POTASSIUM CHLORIDE
  14. MADX [Concomitant]
  15. MULTIVITAMINS [Concomitant]
     Active Substance: VITAMINS
  16. GABAPENTIN. [Concomitant]
     Active Substance: GABAPENTIN
  17. CABOMETYX [Suspect]
     Active Substance: CABOZANTINIB S-MALATE
     Indication: RENAL CANCER
     Dosage: 60 MG, QD
     Route: 048
     Dates: start: 20170921, end: 20171030
  18. OMEPRAZOLE. [Concomitant]
     Active Substance: OMEPRAZOLE
  19. COENZYME [Concomitant]
     Active Substance: UBIDECARENONE
  20. CYMBALTA [Concomitant]
     Active Substance: DULOXETINE HYDROCHLORIDE
  21. AVAPRO [Concomitant]
     Active Substance: IRBESARTAN
  22. IRBESARTAN. [Concomitant]
     Active Substance: IRBESARTAN

REACTIONS (7)
  - Fatigue [Unknown]
  - Nausea [Unknown]
  - Fatigue [Not Recovered/Not Resolved]
  - Diarrhoea [Unknown]
  - Swelling face [Recovering/Resolving]
  - Blood pressure increased [Unknown]
  - Muscular weakness [Unknown]

NARRATIVE: CASE EVENT DATE: 201709
